FAERS Safety Report 21198592 (Version 1)
Quarter: 2022Q3

REPORT INFORMATION
  Report Type: Spontaneous
  Country: GB (occurrence: None)
  Receive Date: 20220811
  Receipt Date: 20220811
  Transmission Date: 20221027
  Serious: Yes (Other)
  Sender: FDA-Public Use
  Company Number: 2022A279207

PATIENT
  Age: 72 Year
  Sex: Male
  Weight: 83.5 kg

DRUGS (4)
  1. DAPAGLIFLOZIN [Suspect]
     Active Substance: DAPAGLIFLOZIN
     Indication: Myocardial ischaemia
     Dosage: 10,AS PER CARDIO
     Route: 048
     Dates: start: 20220628, end: 20220726
  2. COLCHICINE [Concomitant]
     Active Substance: COLCHICINE
     Dosage: 500,MAX 12 TABLETS (6MG) PER GOUT ATTACK; STOP STATIN
     Dates: start: 20220426, end: 20220608
  3. ISOSORBIDE MONONITRATE [Concomitant]
     Active Substance: ISOSORBIDE MONONITRATE
     Dosage: 1,MORNING
     Dates: start: 20220517
  4. OMEPRAZOLE [Concomitant]
     Active Substance: OMEPRAZOLE
     Dosage: 20,FOR 2/52 TJEN REDUCE TO OD
     Dates: start: 20220726

REACTIONS (3)
  - Abdominal pain [Recovered/Resolved]
  - Vomiting [Unknown]
  - Diabetic ketoacidosis [Unknown]

NARRATIVE: CASE EVENT DATE: 20220722
